FAERS Safety Report 7729566-0 (Version None)
Quarter: 2011Q3

REPORT INFORMATION
  Report Type: 
  Country: None (occurrence: None)
  Receive Date: 20110906
  Receipt Date: 20110830
  Transmission Date: 20111222
  Serious: Yes (Hospitalization, Other)
  Sender: FDA-Public Use
  Company Number: US-ABBOTT-11P-163-0839206-00

PATIENT
  Sex: Male
  Weight: 95.34 kg

DRUGS (26)
  1. FUROSEMIDE [Concomitant]
     Indication: CARDIAC FAILURE CONGESTIVE
     Route: 048
  2. LUTEIN [Concomitant]
     Indication: PROPHYLAXIS
  3. SALSALATE [Concomitant]
     Indication: RHEUMATOID ARTHRITIS
     Route: 048
  4. VITAMIN D [Concomitant]
     Indication: VITAMIN SUPPLEMENTATION
     Route: 048
  5. GRAPE SEED EXTRACT [Concomitant]
     Indication: PRODUCT USED FOR UNKNOWN INDICATION
     Dosage: 500-50 MG CAPS
  6. LUTEIN [Concomitant]
     Indication: CATARACT
     Dosage: 8 - 20 MG CAPS DAILY
  7. CALCIUM CITRATE [Concomitant]
     Indication: SUPPLEMENTATION THERAPY
     Route: 048
  8. COENZYME Q10 [Concomitant]
     Indication: OXYGEN SATURATION DECREASED
     Route: 048
  9. NITROGLYCERIN [Concomitant]
     Indication: PRODUCT USED FOR UNKNOWN INDICATION
  10. CEFTIN [Concomitant]
     Indication: PRODUCT USED FOR UNKNOWN INDICATION
     Route: 048
     Dates: start: 20110701
  11. GLUCOSAMINE [Concomitant]
     Indication: ARTHROPATHY
     Dosage: 1000/200/750 MSM TAKES ONE EACH DAY
     Route: 048
  12. AMIODARONE HCL [Concomitant]
     Indication: CARDIAC DISORDER
     Route: 048
  13. SAW PALMETTO [Concomitant]
     Indication: PROSTATOMEGALY
     Route: 048
  14. CIMETIDINE [Concomitant]
     Indication: GASTRIC DISORDER
     Route: 048
  15. FISH OIL [Concomitant]
     Indication: SUPPLEMENTATION THERAPY
     Route: 048
  16. GARLIC [Concomitant]
     Indication: PRODUCT USED FOR UNKNOWN INDICATION
     Route: 048
  17. NITROGLYCERIN SPRAY [Concomitant]
     Indication: ANGINA PECTORIS
  18. HUMIRA [Suspect]
     Indication: SYSTEMIC LUPUS ERYTHEMATOSUS
  19. ASPIRIN [Concomitant]
     Indication: PRODUCT USED FOR UNKNOWN INDICATION
  20. VASOTEC [Concomitant]
     Indication: CARDIAC DISORDER
     Route: 048
  21. METOPROLOL [Concomitant]
     Indication: CARDIAC DISORDER
     Route: 048
  22. MULTI-VITAMIN [Concomitant]
     Indication: VITAMIN SUPPLEMENTATION
     Route: 048
  23. HUMIRA [Suspect]
     Indication: RHEUMATOID ARTHRITIS
     Dates: start: 20061101, end: 20110701
  24. ACIDOPHILUS [Concomitant]
     Indication: PROBIOTIC THERAPY
     Route: 048
  25. CATSCLAW [Concomitant]
     Indication: DECREASED IMMUNE RESPONSIVENESS
     Route: 048
  26. CIMETIDINE [Concomitant]
     Indication: PROPHYLAXIS

REACTIONS (27)
  - CARDIAC DISORDER [None]
  - COUGH [None]
  - BRONCHITIS [None]
  - CARDIAC ASTHMA [None]
  - DECREASED APPETITE [None]
  - RHONCHI [None]
  - CARDIAC FAILURE CONGESTIVE [None]
  - DYSPNOEA EXERTIONAL [None]
  - NASOPHARYNGITIS [None]
  - ABDOMINAL DISTENSION [None]
  - UPPER RESPIRATORY TRACT INFECTION [None]
  - PRODUCTIVE COUGH [None]
  - CATHETERISATION CARDIAC [None]
  - IMPLANTABLE DEFIBRILLATOR INSERTION [None]
  - NASAL CONGESTION [None]
  - MUSCULOSKELETAL PAIN [None]
  - RALES [None]
  - PULMONARY OEDEMA [None]
  - WHEEZING [None]
  - DIZZINESS [None]
  - HEART RATE DECREASED [None]
  - INFLAMMATION [None]
  - ASTHMA [None]
  - RESPIRATORY TRACT CONGESTION [None]
  - EJECTION FRACTION ABNORMAL [None]
  - DYSPNOEA [None]
  - FATIGUE [None]
